FAERS Safety Report 15761758 (Version 2)
Quarter: 2019Q1

REPORT INFORMATION
  Report Type: Spontaneous
  Country: HU (occurrence: HU)
  Receive Date: 20181226
  Receipt Date: 20190118
  Transmission Date: 20190417
  Serious: Yes (Other)
  Sender: FDA-Public Use
  Company Number: HU-BAYER-2018-238929

PATIENT
  Age: 54 Year
  Sex: Male

DRUGS (3)
  1. PERINDOPRIL [Suspect]
     Active Substance: PERINDOPRIL
     Dosage: UNK
     Route: 065
  2. ACETYLSALICYLIC ACID (} 100 MG) [Suspect]
     Active Substance: ASPIRIN
     Dosage: UNK
     Route: 065
  3. NAPROXEN SODIUM ({= 220 MG) [Suspect]
     Active Substance: NAPROXEN SODIUM
     Indication: GOUTY ARTHRITIS
     Dosage: 550 MG, UNK
     Route: 065

REACTIONS (10)
  - Brain stem ischaemia [Recovered/Resolved]
  - Medication error [None]
  - Nausea [Recovered/Resolved]
  - Joint swelling [Recovered/Resolved]
  - Inhibitory drug interaction [None]
  - Hyperthermia [Recovered/Resolved]
  - Dizziness [Recovered/Resolved]
  - Gouty arthritis [Recovered/Resolved]
  - Balance disorder [Recovered/Resolved]
  - Arthralgia [Recovered/Resolved]
